FAERS Safety Report 7177026-0 (Version None)
Quarter: 2010Q4

REPORT INFORMATION
  Report Type: 
  Country: None (occurrence: None)
  Receive Date: 20101207
  Receipt Date: 20101123
  Transmission Date: 20110411
  Serious: Yes (Hospitalization)
  Sender: FDA-Public Use
  Company Number: DSA_44435_2010

PATIENT
  Age: 74 Year
  Sex: Male

DRUGS (12)
  1. ENALAPRIL MALEATE [Suspect]
     Indication: CARDIAC FAILURE CHRONIC
     Dosage: (1.5 TABLETS , ORAL), (2.5 MG QD ORAL)
     Route: 048
     Dates: start: 20080630, end: 20080721
  2. ENALAPRIL MALEATE [Suspect]
     Indication: CARDIAC FAILURE CHRONIC
     Dosage: (1.5 TABLETS , ORAL), (2.5 MG QD ORAL)
     Route: 048
     Dates: start: 20080804
  3. CLEXANE (CLEXANE) (0.6 ML, 0.4 ML) (NOT SPECIFIED) [Suspect]
     Indication: ATRIAL FIBRILLATION
     Dosage: (0.6 ML BID SUBCUTANEOUS), (0.4 ML QD SUBCUTANEOUS)
     Route: 058
     Dates: start: 20080630, end: 20080720
  4. CLEXANE (CLEXANE) (0.6 ML, 0.4 ML) (NOT SPECIFIED) [Suspect]
     Indication: ATRIAL FIBRILLATION
     Dosage: (0.6 ML BID SUBCUTANEOUS), (0.4 ML QD SUBCUTANEOUS)
     Route: 058
     Dates: start: 20080804
  5. XIPAMIDE (XIPAMIDE) 10 MG [Suspect]
     Indication: CARDIAC FAILURE
     Dosage: 10 MG BID ORAL)
     Route: 048
     Dates: start: 20080630, end: 20080722
  6. TOREM /01036501/ (TOREM-TORSEMIDE) (10 MG, 5 MG) (NOT SPECIFIED) [Suspect]
     Indication: HYPERTENSION
     Dosage: (10 MG QD ORAL), (DF ORAL), (5 MG QD ORAL)
     Route: 048
     Dates: end: 20080629
  7. TOREM /01036501/ (TOREM-TORSEMIDE) (10 MG, 5 MG) (NOT SPECIFIED) [Suspect]
     Indication: HYPERTENSION
     Dosage: (10 MG QD ORAL), (DF ORAL), (5 MG QD ORAL)
     Route: 048
     Dates: start: 20080630, end: 20080722
  8. TOREM /01036501/ (TOREM-TORSEMIDE) (10 MG, 5 MG) (NOT SPECIFIED) [Suspect]
     Indication: HYPERTENSION
     Dosage: (10 MG QD ORAL), (DF ORAL), (5 MG QD ORAL)
     Route: 048
     Dates: start: 20080804
  9. VIANI [Concomitant]
  10. THEOPHYLLINE [Concomitant]
  11. URBASON /00049601/ [Concomitant]
  12. SPIRIVA [Concomitant]

REACTIONS (9)
  - BRADYARRHYTHMIA [None]
  - COAGULATION FACTOR X LEVEL INCREASED [None]
  - DEHYDRATION [None]
  - DRUG LEVEL INCREASED [None]
  - HAEMATOCRIT DECREASED [None]
  - HAEMATOMA [None]
  - HAEMOGLOBIN DECREASED [None]
  - RED BLOOD CELL COUNT DECREASED [None]
  - RENAL FAILURE ACUTE [None]
